FAERS Safety Report 12575944 (Version 1)
Quarter: 2016Q3

REPORT INFORMATION
  Report Type: Spontaneous
  Country: GB (occurrence: GB)
  Receive Date: 20160720
  Receipt Date: 20160720
  Transmission Date: 20161109
  Serious: Yes (Hospitalization, Other)
  Sender: FDA-Public Use
  Company Number: PHHY2016GB097995

PATIENT
  Age: 42 Year
  Sex: Female

DRUGS (1)
  1. PIPERACILLIN, TAZOBACTAM [Suspect]
     Active Substance: PIPERACILLIN SODIUM\TAZOBACTAM SODIUM
     Indication: OTITIS MEDIA
     Route: 065

REACTIONS (4)
  - Anaphylactic reaction [Unknown]
  - Hypotension [Not Recovered/Not Resolved]
  - Cardiac arrest [Unknown]
  - Bradycardia [Not Recovered/Not Resolved]
